FAERS Safety Report 4501827-8 (Version None)
Quarter: 2004Q4

REPORT INFORMATION
  Report Type: 
  Country: None (occurrence: None)
  Receive Date: 20041115
  Receipt Date: 20041115
  Transmission Date: 20050328
  Serious: Yes (Life-Threatening, Hospitalization)
  Sender: FDA-Public Use
  Company Number: None

PATIENT
  Age: 64 Year
  Sex: Male
  Weight: 90.3 kg

DRUGS (4)
  1. FOSINOPRIL SODIUM [Suspect]
  2. HYDROCHLOROTHIAZIDE 25MG TAB [Suspect]
  3. ASPIRIN [Concomitant]
  4. CLOTRIMAZOLE 1% CREAM [Concomitant]

REACTIONS (3)
  - HYPERKALAEMIA [None]
  - RENAL FAILURE ACUTE [None]
  - RHABDOMYOLYSIS [None]
